FAERS Safety Report 19617845 (Version 2)
Quarter: 2021Q3

REPORT INFORMATION
  Report Type: Spontaneous
  Country: PL (occurrence: PL)
  Receive Date: 20210728
  Receipt Date: 20210731
  Transmission Date: 20211014
  Serious: Yes (Death, Hospitalization, Other)
  Sender: FDA-Public Use
  Company Number: PL-AUROBINDO-AUR-APL-2021-032106

PATIENT
  Age: 75 Year
  Sex: Male

DRUGS (14)
  1. ALLOPURINOL TABLETS [Suspect]
     Active Substance: ALLOPURINOL
     Indication: PRODUCT USED FOR UNKNOWN INDICATION
     Dosage: 100 MILLIGRAM, ONCE A DAY
     Route: 065
  2. ATORVASTATIN FILM COATED TABLET [Suspect]
     Active Substance: ATORVASTATIN
     Indication: PRODUCT USED FOR UNKNOWN INDICATION
     Dosage: 10 MILLIGRAM, ONCE A DAY(IN THE EVENING)
     Route: 065
  3. ALLOPURINOL TABLETS [Suspect]
     Active Substance: ALLOPURINOL
     Dosage: 300 MILLIGRAM, ONCE A DAY
     Route: 065
  4. ENTRESTO [Suspect]
     Active Substance: SACUBITRIL\VALSARTAN
     Dosage: 50 MILLIGRAM, TWO TIMES A DAY (24/26 MG)
     Route: 065
  5. TORSEMED [Suspect]
     Active Substance: TORSEMIDE
     Indication: PRODUCT USED FOR UNKNOWN INDICATION
     Dosage: 10 MILLIGRAM, ONCE A DAY ((1 X 1 IN THE MORNING))
     Route: 065
  6. ACETYLSALICYLIC ACID [Suspect]
     Active Substance: ASPIRIN
     Indication: MYOCARDIAL INFARCTION
     Dosage: UNK
     Route: 065
  7. ESOMEPRAZOLE. [Suspect]
     Active Substance: ESOMEPRAZOLE MAGNESIUM
     Indication: PRODUCT USED FOR UNKNOWN INDICATION
     Dosage: 80 MILLIGRAM, ONCE A DAY(40 MG, BID (1 X 1 TABLET IN THE MORNING ON THE EMPTY STOMACH)
     Route: 065
  8. RAMIPRIL. [Suspect]
     Active Substance: RAMIPRIL
     Indication: PRODUCT USED FOR UNKNOWN INDICATION
     Dosage: 1.5 DOSAGE FORM, ONCE A DAY ((1 TABLET (2.5 MG IN THE MORNING AND 1/2 TABLET IN THE EVENING))
     Route: 065
  9. IPP [PANTOPRAZOLE SODIUM SESQUIHYDRATE] [Suspect]
     Active Substance: PANTOPRAZOLE SODIUM
     Indication: PRODUCT USED FOR UNKNOWN INDICATION
     Dosage: 20 MILLIGRAM, ONCE A DAY ((1 X 1 IN THE MORNING)
     Route: 065
  10. ESOMEPRAZOLE. [Suspect]
     Active Substance: ESOMEPRAZOLE MAGNESIUM
     Dosage: 40 MILLIGRAM, TWO TIMES A DAY (2 X 1 TABLET)
     Route: 065
  11. BISOPROLOL FILM?COATED TABLETS [Suspect]
     Active Substance: BISOPROLOL
     Indication: PRODUCT USED FOR UNKNOWN INDICATION
     Dosage: 1.25 DOSAGE FORM, ONCE A DAY (1.5 DF, QD (1 X 1 TABLET IN THE MORNING)
     Route: 065
  12. CLOPIDOGREL FILM COATED TABLETS [Suspect]
     Active Substance: CLOPIDOGREL BISULFATE
     Indication: PRODUCT USED FOR UNKNOWN INDICATION
     Dosage: 1 DOSAGE FORM, ONCE A DAY
     Route: 065
     Dates: end: 20191127
  13. BISOPROLOL FILM?COATED TABLETS [Suspect]
     Active Substance: BISOPROLOL
     Dosage: 1.5 DOSAGE FORM, ONCE A DAY (1.5 DF, QD (1.875 MG, IN THE MORNING))
     Route: 065
  14. ENTRESTO [Suspect]
     Active Substance: SACUBITRIL\VALSARTAN
     Indication: PRODUCT USED FOR UNKNOWN INDICATION
     Dosage: 100 MILLIGRAM, ONCE A DAY
     Route: 065

REACTIONS (37)
  - Mitral valve incompetence [Unknown]
  - Gastritis [Unknown]
  - Inferior vena cava dilatation [Unknown]
  - Skin ulcer [Recovered/Resolved]
  - Chest discomfort [Unknown]
  - Pulmonary vascular disorder [Unknown]
  - Disease progression [Unknown]
  - Type 2 diabetes mellitus [Unknown]
  - Cardiac aneurysm [Unknown]
  - Haematochezia [Unknown]
  - Chronic kidney disease [Unknown]
  - Heart rate irregular [Unknown]
  - Oedema peripheral [Recovered/Resolved]
  - Ventricular arrhythmia [Unknown]
  - Peripheral venous disease [Recovered/Resolved]
  - Cataract [Unknown]
  - Asthenia [Unknown]
  - Respiratory tract infection [Unknown]
  - Duodenitis [Unknown]
  - Dyspnoea exertional [Recovered/Resolved]
  - Cardiac failure [Unknown]
  - Eye injury [Unknown]
  - COVID-19 pneumonia [Fatal]
  - Systolic dysfunction [Unknown]
  - Pulmonary hypertension [Unknown]
  - Degenerative mitral valve disease [Unknown]
  - Ventricular hypokinesia [Unknown]
  - Exercise tolerance decreased [Recovered/Resolved]
  - Diarrhoea [Unknown]
  - Cardiac valve disease [Unknown]
  - Productive cough [Unknown]
  - Infective exacerbation of chronic obstructive airways disease [Unknown]
  - Hiatus hernia [Unknown]
  - Atrial fibrillation [Unknown]
  - Nicotine dependence [Unknown]
  - Normocytic anaemia [Unknown]
  - Right ventricular enlargement [Unknown]

NARRATIVE: CASE EVENT DATE: 201806
